FAERS Safety Report 15323331 (Version 1)
Quarter: 2018Q3

REPORT INFORMATION
  Report Type: Spontaneous
  Country: US (occurrence: US)
  Receive Date: 20180827
  Receipt Date: 20180827
  Transmission Date: 20181010
  Serious: Yes (Hospitalization, Other)
  Sender: FDA-Public Use
  Company Number: US-ALLERGAN-1841075US

PATIENT
  Age: 44 Year
  Sex: Female
  Weight: 51.25 kg

DRUGS (3)
  1. BOTOX [Suspect]
     Active Substance: ONABOTULINUMTOXINA
     Indication: MIGRAINE
     Dosage: UNK UNK, SINGLE
     Route: 030
     Dates: start: 201305, end: 201305
  2. BOTOX [Suspect]
     Active Substance: ONABOTULINUMTOXINA
     Dosage: UNK UNK, SINGLE
     Route: 030
     Dates: start: 201705, end: 201705
  3. LAMICTAL [Suspect]
     Active Substance: LAMOTRIGINE
     Indication: SEIZURE
     Dosage: UNK UNK, UNKNOWN
     Route: 048
     Dates: start: 2013, end: 2017

REACTIONS (29)
  - Conjunctival hyperaemia [Unknown]
  - Injection site rash [Not Recovered/Not Resolved]
  - Hypoaesthesia [Unknown]
  - Rash [Recovered/Resolved]
  - Rash [Unknown]
  - Generalised tonic-clonic seizure [Recovered/Resolved]
  - Occipital neuralgia [Unknown]
  - Injection site extravasation [Not Recovered/Not Resolved]
  - Nervous system disorder [Unknown]
  - Alopecia [Unknown]
  - Erythema [Not Recovered/Not Resolved]
  - Skin exfoliation [Unknown]
  - Injection site mass [Not Recovered/Not Resolved]
  - Paraesthesia [Unknown]
  - Muscular weakness [Unknown]
  - Stevens-Johnson syndrome [Unknown]
  - Injury corneal [Unknown]
  - Skin disorder [Not Recovered/Not Resolved]
  - Pruritus [Unknown]
  - Visual impairment [Unknown]
  - Conjunctivitis [Unknown]
  - Headache [Unknown]
  - Craniocerebral injury [Not Recovered/Not Resolved]
  - Lymphocytic infiltration [Not Recovered/Not Resolved]
  - Presbyopia [Unknown]
  - Skin discolouration [Not Recovered/Not Resolved]
  - Punctate keratosis [Unknown]
  - Astigmatism [Unknown]
  - Dry eye [Unknown]

NARRATIVE: CASE EVENT DATE: 2013
